FAERS Safety Report 21709251 (Version 1)
Quarter: 2022Q4

REPORT INFORMATION
  Report Type: Report from Study
  Country: US (occurrence: US)
  Receive Date: 20221210
  Receipt Date: 20221210
  Transmission Date: 20230112
  Serious: Yes (Other)
  Sender: FDA-Public Use
  Company Number: US-ABBVIE-4230864

PATIENT
  Age: 35 Year
  Sex: Female

DRUGS (2)
  1. HUMIRA [Suspect]
     Active Substance: ADALIMUMAB
     Indication: Hidradenitis
     Dosage: THERAPY 1ST
     Route: 058
     Dates: end: 2022
  2. HUMIRA [Suspect]
     Active Substance: ADALIMUMAB
     Dosage: THERAPY 2ND
     Route: 058
     Dates: start: 2022

REACTIONS (2)
  - Spinal fusion surgery [Recovered/Resolved]
  - Sinus operation [Unknown]

NARRATIVE: CASE EVENT DATE: 20220301
